FAERS Safety Report 21144023 (Version 2)
Quarter: 2022Q3

REPORT INFORMATION
  Report Type: Report from Study
  Country: US (occurrence: US)
  Receive Date: 20220728
  Receipt Date: 20220922
  Transmission Date: 20221027
  Serious: No
  Sender: FDA-Public Use
  Company Number: US-NOVARTISTESTPH-NVSC2022US170255

PATIENT
  Sex: Female

DRUGS (1)
  1. COSENTYX [Suspect]
     Active Substance: SECUKINUMAB
     Indication: Psoriasis
     Dosage: 300 MG, OTHER (PATIENT HAD NOT HAD MEDICATION FOR ABOUT 2 YEARS)
     Route: 058

REACTIONS (4)
  - Pruritus [Unknown]
  - Pain [Unknown]
  - Discomfort [Unknown]
  - Psoriasis [Unknown]
